FAERS Safety Report 4641047-X (Version None)
Quarter: 2005Q2

REPORT INFORMATION
  Report Type: 
  Country: None (occurrence: None)
  Receive Date: 20050421
  Receipt Date: 20050408
  Transmission Date: 20051028
  Serious: Yes (Other)
  Sender: FDA-Public Use
  Company Number: GB-JNJFOC-20050402226

PATIENT
  Sex: Female
  Weight: 50 kg

DRUGS (11)
  1. REMICADE [Suspect]
     Route: 042
  2. LANSOPRAZOLE [Concomitant]
  3. CO-CODAMOL [Concomitant]
  4. CO-CODAMOL [Concomitant]
  5. GLICLAZIDE [Concomitant]
  6. PROPRANOL [Concomitant]
  7. TRAMADOL HCL [Concomitant]
  8. FOSAMAX [Concomitant]
  9. SPIRONOLACTONE [Concomitant]
  10. RANITIDINE [Concomitant]
  11. LOPERAMIDE HCL [Concomitant]

REACTIONS (1)
  - ASCITES [None]
